FAERS Safety Report 5102086-8 (Version None)
Quarter: 2006Q3

REPORT INFORMATION
  Report Type: 
  Country: None (occurrence: None)
  Receive Date: 20060912
  Receipt Date: 20060628
  Transmission Date: 20061208
  Serious: Yes (Other)
  Sender: FDA-Public Use
  Company Number: PHBS2006JP09851

PATIENT

DRUGS (1)
  1. RITALIN [Suspect]
     Indication: MALAISE
     Route: 048

REACTIONS (1)
  - DELIRIUM [None]
